FAERS Safety Report 15796328 (Version 1)
Quarter: 2019Q1

REPORT INFORMATION
  Report Type: Report from Study
  Country: US (occurrence: US)
  Receive Date: 20190108
  Receipt Date: 20190108
  Transmission Date: 20190417
  Serious: No
  Sender: FDA-Public Use
  Company Number: PHEH2018US055571

PATIENT
  Age: 47 Year
  Sex: Female

DRUGS (1)
  1. GILENYA [Suspect]
     Active Substance: FINGOLIMOD HYDROCHLORIDE
     Indication: MULTIPLE SCLEROSIS
     Dosage: 0.5 MG, QD
     Route: 048

REACTIONS (8)
  - Middle ear effusion [Unknown]
  - Liver function test increased [Unknown]
  - Ear infection [Unknown]
  - Incoherent [Unknown]
  - Arthritis [Unknown]
  - Palpitations [Recovered/Resolved]
  - Tooth infection [Unknown]
  - Confusional state [Unknown]

NARRATIVE: CASE EVENT DATE: 2018
